FAERS Safety Report 4400734-9 (Version None)
Quarter: 2004Q3

REPORT INFORMATION
  Report Type: 
  Country: None (occurrence: None)
  Receive Date: 20040714
  Receipt Date: 20040628
  Transmission Date: 20050211
  Serious: Yes (Hospitalization)
  Sender: FDA-Public Use
  Company Number: 2004-BP-04123BP (1)

PATIENT

DRUGS (2)
  1. SPIRIVA [Suspect]
     Dosage: (18 MCG) , IH
     Route: 055
  2. PREDNISONE TAB [Concomitant]

REACTIONS (4)
  - INSOMNIA [None]
  - IRRITABILITY [None]
  - MYOCARDIAL INFARCTION [None]
  - TREMOR [None]
